FAERS Safety Report 25970867 (Version 1)
Quarter: 2025Q4

REPORT INFORMATION
  Report Type: Spontaneous
  Country: US (occurrence: None)
  Receive Date: 20251028
  Receipt Date: 20251028
  Transmission Date: 20260118
  Serious: Yes (unspecified)
  Sender: FDA-CTU
  Company Number: None

PATIENT
  Age: 82 Year
  Sex: Female
  Weight: 71 kg

DRUGS (1)
  1. KISUNLA [Suspect]
     Active Substance: DONANEMAB-AZBT
     Indication: Dementia Alzheimer^s type
     Dosage: 1400 MG MONTHLY INTRAVENOUS DRIP
     Route: 041
     Dates: start: 20250619

REACTIONS (5)
  - Infusion related reaction [None]
  - Flushing [None]
  - Lacrimation increased [None]
  - Cough [None]
  - Chest discomfort [None]

NARRATIVE: CASE EVENT DATE: 20251024
